FAERS Safety Report 9674467 (Version 5)
Quarter: 2016Q4

REPORT INFORMATION
  Report Type: Report from Study
  Country: BR (occurrence: BR)
  Receive Date: 20131107
  Receipt Date: 20161018
  Transmission Date: 20170207
  Serious: Yes (Hospitalization, Other)
  Sender: FDA-Public Use
  Company Number: BR-ROCHE-702453

PATIENT
  Sex: Female
  Weight: 82 kg

DRUGS (15)
  1. ACETYLCYSTEINE. [Concomitant]
     Active Substance: ACETYLCYSTEINE
  2. HYDROCHLOROTHIAZIDE. [Concomitant]
     Active Substance: HYDROCHLOROTHIAZIDE
     Indication: HYPERTENSION
     Route: 065
  3. SIBUTRAMINE HYDROCHLORIDE [Concomitant]
     Active Substance: SIBUTRAMINE HYDROCHLORIDE
     Route: 065
  4. VELIJA [Concomitant]
     Active Substance: DULOXETINE HYDROCHLORIDE
     Route: 065
  5. ACTEMRA [Suspect]
     Active Substance: TOCILIZUMAB
     Indication: RHEUMATOID ARTHRITIS
     Dosage: 41 INFUSIONS IN TOTAL PERFORMED MONTLHY
     Route: 042
  6. LOSARTAN. [Concomitant]
     Active Substance: LOSARTAN
     Indication: HYPERTENSION
     Route: 065
  7. OSTEONUTRI [Concomitant]
     Indication: OSTEOPOROSIS
     Route: 065
  8. HYDROCHLOROTHIAZIDE. [Concomitant]
     Active Substance: HYDROCHLOROTHIAZIDE
     Indication: HYPERTENSION
  9. PRESSAT [Concomitant]
     Active Substance: AMLODIPINE BESYLATE
     Indication: ARRHYTHMIA
  10. GABAPENTIN. [Concomitant]
     Active Substance: GABAPENTIN
     Indication: DEPRESSION
  11. AD-TIL [Concomitant]
  12. PRELONE [Concomitant]
     Active Substance: PREDNISOLONE
     Route: 065
  13. OMEPRAZOLE. [Concomitant]
     Active Substance: OMEPRAZOLE
  14. PANTOPRAZOLE [Concomitant]
     Active Substance: PANTOPRAZOLE SODIUM
     Indication: GASTRIC DISORDER
     Route: 065
  15. PANTOPRAZOLE [Concomitant]
     Active Substance: PANTOPRAZOLE SODIUM
     Indication: GASTROOESOPHAGEAL REFLUX DISEASE

REACTIONS (11)
  - Decreased immune responsiveness [Recovered/Resolved]
  - Urinary tract infection [Recovered/Resolved]
  - Limb deformity [Unknown]
  - Ill-defined disorder [Unknown]
  - Respiratory tract infection [Recovering/Resolving]
  - Enteritis infectious [Recovered/Resolved]
  - Ill-defined disorder [Recovering/Resolving]
  - Nervous system disorder [Unknown]
  - Rheumatoid arthritis [Not Recovered/Not Resolved]
  - Arthralgia [Recovering/Resolving]
  - Dermatitis [Unknown]

NARRATIVE: CASE EVENT DATE: 2010
